FAERS Safety Report 25567622 (Version 1)
Quarter: 2025Q3

REPORT INFORMATION
  Report Type: Spontaneous
  Country: US (occurrence: None)
  Receive Date: 20250716
  Receipt Date: 20250716
  Transmission Date: 20251020
  Serious: Yes (Hospitalization)
  Sender: FDA-CTU
  Company Number: None

PATIENT
  Sex: Female

DRUGS (11)
  1. TEZSPIRE [Suspect]
     Active Substance: TEZEPELUMAB-EKKO
     Dosage: OTHER QUANTITY : 1 PEN UNER THE SKIN;?FREQUENCY : MONTHLY;?
     Route: 058
  2. ALBUTEROL AER HFA [Concomitant]
  3. BENZONATATE CAP 100MG [Concomitant]
  4. DITROPAN XL TAB 5MG [Concomitant]
  5. GABAPENTIN CAP 100MG [Concomitant]
  6. HYDROXYZ HCL TAB 50MG [Concomitant]
  7. LASIX TAB 40MG [Concomitant]
  8. MONTELUKAST SODIUM [Concomitant]
     Active Substance: MONTELUKAST SODIUM
  9. MULTIVITAMIN CAP DAILY [Concomitant]
  10. NEXIUM CAP 40MG [Concomitant]
  11. OXYBUTYNIN TAB [Concomitant]

REACTIONS (2)
  - Asthma [None]
  - Quality of life decreased [None]
